FAERS Safety Report 7581303-9 (Version None)
Quarter: 2011Q2

REPORT INFORMATION
  Report Type: 
  Country: None (occurrence: None)
  Receive Date: 20110629
  Receipt Date: 20110622
  Transmission Date: 20111010
  Serious: Yes (Death, Other)
  Sender: FDA-Public Use
  Company Number: JP-ROCHE-713139

PATIENT
  Sex: Female

DRUGS (2)
  1. AVASTIN [Suspect]
     Indication: BRAIN STEM GLIOMA
     Route: 041
     Dates: start: 20091104, end: 20100407
  2. IRINOTECAN HCL [Concomitant]
     Dosage: DOSAGE IS UNCERTAIN
     Route: 041

REACTIONS (5)
  - ALOPECIA [None]
  - DISEASE PROGRESSION [None]
  - TUMOUR HAEMORRHAGE [None]
  - GINGIVAL BLEEDING [None]
  - LYMPHOCYTE COUNT DECREASED [None]
